FAERS Safety Report 17349740 (Version 1)
Quarter: 2020Q1

REPORT INFORMATION
  Report Type: Spontaneous
  Country: US (occurrence: US)
  Receive Date: 20200129
  Receipt Date: 20200129
  Transmission Date: 20200409
  Serious: Yes (Life-Threatening, Disabling)
  Sender: FDA-Public Use
  Company Number: None

PATIENT
  Age: 41 Year
  Sex: Female
  Weight: 55.34 kg

DRUGS (1)
  1. MIRENA [Suspect]
     Active Substance: LEVONORGESTREL
     Dates: start: 20190618, end: 20200121

REACTIONS (13)
  - Weight decreased [None]
  - Acne [None]
  - Bundle branch block right [None]
  - Emotional distress [None]
  - Middle insomnia [None]
  - Alopecia [None]
  - Panic attack [None]
  - Hypertension [None]
  - Eye disorder [None]
  - Palpitations [None]
  - Asthenia [None]
  - Feeling abnormal [None]
  - Anxiety [None]

NARRATIVE: CASE EVENT DATE: 20200101
